FAERS Safety Report 10054901 (Version 1)
Quarter: 2014Q2

REPORT INFORMATION
  Report Type: Spontaneous
  Country: FR (occurrence: FR)
  Receive Date: 20140402
  Receipt Date: 20140402
  Transmission Date: 20141212
  Serious: Yes (Hospitalization)
  Sender: FDA-Public Use
  Company Number: FR-009507513-1403FRA012555

PATIENT
  Age: 53 Year
  Sex: Female

DRUGS (6)
  1. AERIUS [Suspect]
     Indication: SEASONAL ALLERGY
     Dosage: 1 DF, ONCE
     Route: 048
     Dates: start: 20130612
  2. PLAQUENIL [Suspect]
     Indication: SOLAR DERMATITIS
     Dosage: UNK
     Route: 048
     Dates: start: 20130611, end: 20130614
  3. BI-PROFENID [Suspect]
     Indication: MIGRAINE
     Dosage: UNK, PRN
     Route: 048
     Dates: start: 20130607, end: 20130614
  4. ARKOPHARMA FORCAPIL [Concomitant]
     Indication: ALOPECIA
     Dosage: UNK
     Route: 048
     Dates: start: 201303, end: 20130614
  5. OESTROGEL [Concomitant]
     Indication: HORMONE THERAPY
     Dosage: 2 DF, QW
     Route: 062
     Dates: start: 2011, end: 20130611
  6. PROGESTERONE [Concomitant]
     Indication: HORMONE THERAPY
     Dosage: UNK
     Route: 048
     Dates: start: 2011, end: 20130617

REACTIONS (3)
  - Pruritus [Recovered/Resolved]
  - Eosinophilia [Recovered/Resolved]
  - Rash maculo-papular [Recovered/Resolved]
